FAERS Safety Report 4686474-X (Version None)
Quarter: 2005Q2

REPORT INFORMATION
  Report Type: 
  Country: None (occurrence: None)
  Receive Date: 20050607
  Receipt Date: 20050601
  Transmission Date: 20051028
  Serious: Yes (Death, Hospitalization)
  Sender: FDA-Public Use
  Company Number: 200511095BWH

PATIENT
  Age: 36 Year
  Sex: Male

DRUGS (2)
  1. CIPRO [Suspect]
  2. METRONIDAZOLE [Suspect]

REACTIONS (2)
  - CLOSTRIDIAL INFECTION [None]
  - DIARRHOEA [None]
